FAERS Safety Report 20696534 (Version 1)
Quarter: 2022Q2

REPORT INFORMATION
  Report Type: Report from Study
  Country: US (occurrence: US)
  Receive Date: 20220411
  Receipt Date: 20220411
  Transmission Date: 20220721
  Serious: No
  Sender: FDA-Public Use
  Company Number: US-TRAVERE-2022TVT00039

PATIENT
  Age: 18 Year
  Sex: Female

DRUGS (2)
  1. CHOLBAM [Suspect]
     Active Substance: CHOLIC ACID
     Indication: Malabsorption
     Dosage: DOSE OF 250MG/TID
     Route: 048
     Dates: start: 20150507
  2. CHOLBAM [Suspect]
     Active Substance: CHOLIC ACID
     Indication: Feeding intolerance
     Dates: start: 20200522

REACTIONS (1)
  - Diarrhoea [Unknown]
